FAERS Safety Report 15261037 (Version 1)
Quarter: 2018Q3

REPORT INFORMATION
  Report Type: Report from Study
  Country: US (occurrence: US)
  Receive Date: 20180809
  Receipt Date: 20180809
  Transmission Date: 20181010
  Serious: Yes (Hospitalization, Other)
  Sender: FDA-Public Use
  Company Number: PHHY2018US053089

PATIENT
  Sex: Female
  Weight: 70 kg

DRUGS (2)
  1. AFINITOR [Suspect]
     Active Substance: EVEROLIMUS
     Indication: INVASIVE BREAST CARCINOMA
     Dosage: 10 MG, UNK
     Route: 065
     Dates: start: 20180524, end: 20180716
  2. LETROZOLE. [Suspect]
     Active Substance: LETROZOLE
     Indication: INVASIVE BREAST CARCINOMA
     Dosage: 2.5 MG, UNK
     Route: 065
     Dates: start: 20180716

REACTIONS (3)
  - Pneumonia [Unknown]
  - Lung infection [Unknown]
  - Toxicity to various agents [Unknown]

NARRATIVE: CASE EVENT DATE: 20180716
